FAERS Safety Report 6370322-6 (Version None)
Quarter: 2009Q3

REPORT INFORMATION
  Report Type: 
  Country: None (occurrence: None)
  Receive Date: 20090923
  Receipt Date: 20090914
  Transmission Date: 20100115
  Serious: Yes (Other)
  Sender: FDA-Public Use
  Company Number: DK-AMGEN-US358542

PATIENT
  Sex: Female

DRUGS (3)
  1. ENBREL [Suspect]
     Indication: RHEUMATOID ARTHRITIS
     Route: 058
     Dates: start: 20071030, end: 20080407
  2. FOLIC ACID [Concomitant]
     Dosage: UNKNOWN
     Route: 065
     Dates: start: 20041125
  3. METHOTREXATE [Concomitant]
     Dosage: UNKNOWN
     Route: 048
     Dates: start: 20041124, end: 20071113

REACTIONS (1)
  - PROTEINURIA [None]
